FAERS Safety Report 5346428-7 (Version None)
Quarter: 2007Q2

REPORT INFORMATION
  Report Type: 
  Country: None (occurrence: None)
  Receive Date: 20070605
  Receipt Date: 20070522
  Transmission Date: 20071010
  Serious: Yes (Hospitalization)
  Sender: FDA-Public Use
  Company Number: FR-SHR-FR-2007-018671

PATIENT
  Age: 78 Year
  Sex: Female

DRUGS (2)
  1. FLUDARA [Suspect]
     Dosage: 60 MG/D, CYCLE X 5D
     Route: 048
     Dates: start: 20070508, end: 20070512
  2. ENDOXAN [Concomitant]
     Dosage: UNK, CYCLE X 5D
     Route: 065
     Dates: start: 20070508, end: 20070512

REACTIONS (4)
  - HYPONATRAEMIA [None]
  - QUADRIPARESIS [None]
  - RESPIRATORY DISORDER [None]
  - VOMITING [None]
